FAERS Safety Report 6472431-X (Version None)
Quarter: 2009Q4

REPORT INFORMATION
  Report Type: 
  Country: None (occurrence: None)
  Receive Date: 20091201
  Receipt Date: 20091117
  Transmission Date: 20100525
  Serious: Yes (Hospitalization)
  Sender: FDA-Public Use
  Company Number: 233222J09USA

PATIENT
  Age: 41 Year
  Sex: Female

DRUGS (6)
  1. REBIF [Suspect]
     Indication: MULTIPLE SCLEROSIS
     Dosage: 44 MCG, 3 IN 1 WEEKS, SUBCUTANEOUS
     Route: 058
     Dates: start: 20090916
  2. ARICEPT [Suspect]
     Indication: AMNESIA
     Dates: start: 20090101, end: 20091101
  3. AMANTADINE HCL [Suspect]
     Indication: FATIGUE
     Dates: start: 20090101, end: 20091101
  4. KEPPRA [Concomitant]
  5. FLUOXETINE [Concomitant]
  6. RISPERDAL [Concomitant]

REACTIONS (3)
  - CONVULSION [None]
  - MUSCULAR WEAKNESS [None]
  - URINARY TRACT INFECTION [None]
